FAERS Safety Report 4811453-9 (Version None)
Quarter: 2005Q4

REPORT INFORMATION
  Report Type: 
  Country: None (occurrence: None)
  Receive Date: 20051027
  Receipt Date: 20051011
  Transmission Date: 20060501
  Serious: Yes (Hospitalization)
  Sender: FDA-Public Use
  Company Number: US-BRISTOL-MYERS SQUIBB COMPANY-13140553

PATIENT
  Age: 70 Year
  Sex: Male

DRUGS (3)
  1. CETUXIMAB [Suspect]
     Indication: NON-SMALL CELL LUNG CANCER
     Dosage: INITIAL TX DATE: 28-JUN-05.
     Route: 042
     Dates: start: 20051004, end: 20051004
  2. CISPLATIN [Suspect]
     Indication: NON-SMALL CELL LUNG CANCER
     Dosage: INITIAL TX DATE: 28-JUN-05.
     Route: 042
     Dates: start: 20050927, end: 20050927
  3. GEMCITABINE [Suspect]
     Indication: NON-SMALL CELL LUNG CANCER
     Dosage: INITIAL TX DATE: 28-JUN-05.
     Route: 042
     Dates: start: 20050927, end: 20050927

REACTIONS (4)
  - CULTURE POSITIVE [None]
  - HAEMOGLOBIN DECREASED [None]
  - PNEUMONIA [None]
  - STAPHYLOCOCCAL INFECTION [None]
